FAERS Safety Report 7710395-9 (Version None)
Quarter: 2011Q3

REPORT INFORMATION
  Report Type: 
  Country: None (occurrence: None)
  Receive Date: 20110825
  Receipt Date: 20110811
  Transmission Date: 20111222
  Serious: Yes (Hospitalization)
  Sender: FDA-Public Use
  Company Number: JP-ELI_LILLY_AND_COMPANY-JP201108001335

PATIENT
  Sex: Female

DRUGS (3)
  1. SUNRYTHM [Concomitant]
     Indication: CARDIAC DISORDER
     Route: 048
  2. FORTEO [Suspect]
     Dosage: UNK
     Route: 058
     Dates: start: 20110705
  3. BEPRICOR [Concomitant]
     Indication: CARDIAC DISORDER

REACTIONS (3)
  - LUMBAR VERTEBRAL FRACTURE [None]
  - PRURITUS [None]
  - OROPHARYNGEAL PAIN [None]
